FAERS Safety Report 22204110 (Version 2)
Quarter: 2023Q2

REPORT INFORMATION
  Report Type: Spontaneous
  Country: US (occurrence: US)
  Receive Date: 20230412
  Receipt Date: 20230523
  Transmission Date: 20230721
  Serious: No
  Sender: FDA-Public Use
  Company Number: US-PFIZER INC-PV202300066503

PATIENT
  Age: 71 Year
  Sex: Female

DRUGS (1)
  1. INLYTA [Suspect]
     Active Substance: AXITINIB
     Dosage: UNK

REACTIONS (6)
  - Dysphonia [Unknown]
  - Dry skin [Unknown]
  - Skin exfoliation [Unknown]
  - Asthenia [Unknown]
  - Lacrimation increased [Unknown]
  - Product dose omission in error [Unknown]
